FAERS Safety Report 8460386-8 (Version None)
Quarter: 2012Q2

REPORT INFORMATION
  Report Type: 
  Country: None (occurrence: None)
  Receive Date: 20120323
  Receipt Date: 20111028
  Transmission Date: 20120825
  Serious: Yes (Other)
  Sender: FDA-Public Use
  Company Number: 163-21880-11110176

PATIENT
  Age: 77 Year
  Sex: Male

DRUGS (6)
  1. HUMULIN (NOVOLIN 20/80) [Concomitant]
  2. REVLIMID [Suspect]
     Indication: MULTIPLE MYELOMA
     Dosage: 15 MG, X 3 WK ON AND 1 WK OFF, PO
     Route: 048
     Dates: start: 20110608
  3. LISINOPRIL [Concomitant]
  4. GLYBURIDE [Concomitant]
  5. DEXAMETHASONE [Concomitant]
  6. ASPIRIN [Concomitant]

REACTIONS (1)
  - THROMBOSIS [None]
